FAERS Safety Report 25665736 (Version 1)
Quarter: 2025Q3

REPORT INFORMATION
  Report Type: Spontaneous
  Country: US (occurrence: None)
  Receive Date: 20250811
  Receipt Date: 20250811
  Transmission Date: 20251021
  Serious: Yes (Disabling)
  Sender: FDA-CTU
  Company Number: None

PATIENT
  Age: 52 Year
  Sex: Male
  Weight: 81 kg

DRUGS (2)
  1. GADOLINIUM [Suspect]
     Active Substance: GADOLINIUM
  2. VITAMIN D NOS [Concomitant]
     Active Substance: CHOLECALCIFEROL\ERGOCALCIFEROL

REACTIONS (9)
  - Tinnitus [None]
  - Pain [None]
  - Tremor [None]
  - Muscle twitching [None]
  - Headache [None]
  - Formication [None]
  - Insomnia [None]
  - Hypoaesthesia [None]
  - Electric shock sensation [None]

NARRATIVE: CASE EVENT DATE: 20230325
